FAERS Safety Report 16086565 (Version 1)
Quarter: 2019Q1

REPORT INFORMATION
  Report Type: Spontaneous
  Country: US (occurrence: US)
  Receive Date: 20190318
  Receipt Date: 20190318
  Transmission Date: 20190418
  Serious: No
  Sender: FDA-Public Use
  Company Number: US-SCILEX PHARMACEUTICALS INC.-2019SCX00006

PATIENT
  Age: 47 Year
  Sex: Male
  Weight: 104.31 kg

DRUGS (1)
  1. ZTLIDO [Suspect]
     Active Substance: LIDOCAINE
     Indication: PAIN
     Dosage: 1 PATCH, TWICE TO HIS LEFT ANKLE
     Route: 061
     Dates: start: 201812, end: 201812

REACTIONS (2)
  - Application site dermatitis [Recovered/Resolved]
  - Off label use [Recovered/Resolved]

NARRATIVE: CASE EVENT DATE: 201812
